FAERS Safety Report 8050989-7 (Version None)
Quarter: 2012Q1

REPORT INFORMATION
  Report Type: 
  Country: None (occurrence: None)
  Receive Date: 20120117
  Receipt Date: 20120111
  Transmission Date: 20120608
  Serious: Yes (Other)
  Sender: FDA-Public Use
  Company Number: PHHY2011DE111133

PATIENT
  Sex: Female

DRUGS (1)
  1. ZOLEDRONOC ACID [Suspect]
     Indication: LOWER LIMB FRACTURE
     Dosage: 5 MG, UNK
     Route: 042
     Dates: start: 20110401

REACTIONS (1)
  - TOOTH FRACTURE [None]
